FAERS Safety Report 8353233-6 (Version None)
Quarter: 2012Q2

REPORT INFORMATION
  Report Type: 
  Country: None (occurrence: None)
  Receive Date: 20120509
  Receipt Date: 20120427
  Transmission Date: 20120825
  Serious: Yes (Hospitalization, Other)
  Sender: FDA-Public Use
  Company Number: 2012SP017245

PATIENT
  Sex: Male

DRUGS (4)
  1. RIBAVIRIN [Suspect]
     Indication: HEPATITIS C
     Dates: start: 20120316
  2. PEG-INTRON [Suspect]
     Indication: HEPATITIS C
     Dates: start: 20120316
  3. TELAPREVIR [Suspect]
     Indication: HEPATITIS C
     Dates: start: 20120316
  4. INCIVEK [Suspect]
     Indication: PRODUCT USED FOR UNKNOWN INDICATION
     Dates: start: 20120317

REACTIONS (3)
  - DIARRHOEA [None]
  - CHILLS [None]
  - CLOSTRIDIAL INFECTION [None]
